FAERS Safety Report 5190171-4 (Version None)
Quarter: 2006Q4

REPORT INFORMATION
  Report Type: 
  Country: None (occurrence: None)
  Receive Date: 20061222
  Receipt Date: 20061017
  Transmission Date: 20070319
  Serious: Yes (Other)
  Sender: FDA-Public Use
  Company Number: PHBS2006NO16165

PATIENT
  Age: 69 Year
  Sex: Male

DRUGS (2)
  1. ZOMETA [Suspect]
     Indication: METASTASES TO BONE
     Dosage: 4 MG, EVERY 4 WEKS
     Route: 065
     Dates: start: 20040401, end: 20040624
  2. AREDIA [Suspect]
     Indication: PROSTATE CANCER
     Dosage: 60 MG, Q6W
     Route: 065
     Dates: start: 20040625, end: 20060827

REACTIONS (7)
  - LOOSE TOOTH [None]
  - MALAISE [None]
  - OSTEONECROSIS [None]
  - PAIN [None]
  - PAIN IN JAW [None]
  - PYREXIA [None]
  - TOOTH EXTRACTION [None]
